FAERS Safety Report 20976720 (Version 1)
Quarter: 2022Q2

REPORT INFORMATION
  Report Type: Spontaneous
  Country: US (occurrence: US)
  Receive Date: 20220617
  Receipt Date: 20220617
  Transmission Date: 20220721
  Serious: Yes (Death, Other)
  Sender: FDA-Public Use
  Company Number: US-PFIZER INC-202200824651

PATIENT
  Age: 90 Month
  Sex: Male

DRUGS (10)
  1. DOXORUBICIN HYDROCHLORIDE [Suspect]
     Active Substance: DOXORUBICIN HYDROCHLORIDE
     Indication: Chondrosarcoma
     Dosage: 75 MG/M2
     Dates: start: 197710
  2. DOXORUBICIN HYDROCHLORIDE [Suspect]
     Active Substance: DOXORUBICIN HYDROCHLORIDE
     Indication: Chondrosarcoma metastatic
     Dosage: 525 MG/M2
  3. METHOTREXATE SODIUM [Suspect]
     Active Substance: METHOTREXATE SODIUM
     Dosage: UNK, WEEKLY (HIGH DOSE 7.5 G/M^2)
     Dates: start: 197710
  4. MITOXANTRONE [Suspect]
     Active Substance: MITOXANTRONE HYDROCHLORIDE
     Indication: Metastases to lung
     Dosage: 18 MG/M2, MONTHLY
  5. CYCLOPHOSPHAMIDE [Suspect]
     Active Substance: CYCLOPHOSPHAMIDE
     Indication: Chondrosarcoma
     Dosage: 600 MG/M2, CYCLIC
     Dates: start: 197710
  6. CYCLOPHOSPHAMIDE [Suspect]
     Active Substance: CYCLOPHOSPHAMIDE
     Indication: Chondrosarcoma metastatic
  7. CISPLATIN [Suspect]
     Active Substance: CISPLATIN
     Indication: Chondrosarcoma
     Dosage: UNK, CYCLIC
  8. CISPLATIN [Suspect]
     Active Substance: CISPLATIN
     Indication: Chondrosarcoma metastatic
  9. DEXRAZOXANE [Suspect]
     Active Substance: DEXRAZOXANE
     Indication: Chondrosarcoma
  10. DEXRAZOXANE [Suspect]
     Active Substance: DEXRAZOXANE
     Indication: Chondrosarcoma metastatic

REACTIONS (2)
  - Cardiac failure congestive [Fatal]
  - Respiratory failure [Fatal]
